FAERS Safety Report 11926735 (Version 3)
Quarter: 2016Q1

REPORT INFORMATION
  Report Type: Spontaneous
  Country: CH (occurrence: CH)
  Receive Date: 20160119
  Receipt Date: 20160217
  Transmission Date: 20160526
  Serious: Yes (Hospitalization, Other)
  Sender: FDA-Public Use
  Company Number: CH-PFIZER INC-2016019411

PATIENT
  Age: 26 Year
  Sex: Female
  Weight: 50 kg

DRUGS (6)
  1. SPASMO-CANULASE [Concomitant]
     Active Substance: AMYLASE\CELLULASE\GLUTAMIC ACID HYDROCHLORIDE\PANCRELIPASE\PEPSIN\PROTEASE
     Indication: IRRITABLE BOWEL SYNDROME
     Dosage: SINGLE DOSE ^BITAB^ THREE TIMES DAILY
     Route: 048
     Dates: start: 201505
  2. VITAMIN D3 [Concomitant]
     Active Substance: CHOLECALCIFEROL
     Dosage: 80 GTT, 1X/WEEK
     Route: 048
     Dates: start: 201501
  3. REMERON [Suspect]
     Active Substance: MIRTAZAPINE
     Indication: SLEEP DISORDER
     Dosage: 30 MG, 1X/DAY
     Route: 048
     Dates: start: 201501
  4. CALCIUM SANDOZ D [Concomitant]
     Dosage: 1 DF, 1X/DAY
     Route: 048
     Dates: start: 201501
  5. RESOURCE PROTEIN /07499801/ [Concomitant]
     Dosage: 1 DF, 1X/DAY
     Route: 048
     Dates: start: 201501, end: 201509
  6. EFFEXOR XR [Suspect]
     Active Substance: VENLAFAXINE HYDROCHLORIDE
     Indication: DEPRESSION
     Dosage: 75 MG, 1X/DAY
     Route: 048
     Dates: start: 201501

REACTIONS (4)
  - Anorexia nervosa [Unknown]
  - Osteonecrosis [Not Recovered/Not Resolved]
  - Arthralgia [Unknown]
  - Condition aggravated [Unknown]

NARRATIVE: CASE EVENT DATE: 201501
